FAERS Safety Report 9690515 (Version 1)
Quarter: 2013Q4

REPORT INFORMATION
  Report Type: Spontaneous
  Country: GB (occurrence: GB)
  Receive Date: 20131115
  Receipt Date: 20131115
  Transmission Date: 20140711
  Serious: Yes (Hospitalization, Other)
  Sender: FDA-Public Use
  Company Number: GB-NOVOPROD-391874

PATIENT
  Sex: Female

DRUGS (1)
  1. NOVOMIX 30 FLEXPEN [Suspect]
     Indication: DIABETES MELLITUS
     Dosage: 14U MORNING, 12U NIGHT
     Dates: start: 20130613

REACTIONS (2)
  - Myocardial infarction [Recovered/Resolved]
  - Blood glucose increased [Recovered/Resolved]
